FAERS Safety Report 9815247 (Version 1)
Quarter: 2014Q1

REPORT INFORMATION
  Report Type: Report from Study
  Country: GB (occurrence: GB)
  Receive Date: 20140114
  Receipt Date: 20140114
  Transmission Date: 20141002
  Serious: Yes (Other)
  Sender: FDA-Public Use
  Company Number: GB-AMGEN-GBRCT2014002324

PATIENT
  Age: 75 Year
  Sex: Male
  Weight: 85 kg

DRUGS (2)
  1. ETANERCEPT [Suspect]
     Indication: RHEUMATOID ARTHRITIS
     Dosage: 25 MG, 2X/WEEK
     Route: 065
     Dates: start: 20030312
  2. METHOTREXATE [Concomitant]
     Dosage: UNK

REACTIONS (1)
  - Prostate cancer [Not Recovered/Not Resolved]
